FAERS Safety Report 7628154-4 (Version None)
Quarter: 2011Q3

REPORT INFORMATION
  Report Type: 
  Country: None (occurrence: None)
  Receive Date: 20110720
  Receipt Date: 20110720
  Transmission Date: 20111222
  Serious: Yes (Hospitalization)
  Sender: FDA-Public Use
  Company Number: None

PATIENT
  Sex: Female
  Weight: 142 kg

DRUGS (2)
  1. PACLITAXEL [Suspect]
     Dosage: 151 MG
     Dates: end: 20100222
  2. HERCEPTIN [Suspect]
     Dosage: 2041 MG
     Dates: end: 20100222

REACTIONS (1)
  - MULTIPLE GATED ACQUISITION SCAN ABNORMAL [None]
